FAERS Safety Report 4838199-5 (Version None)
Quarter: 2005Q4

REPORT INFORMATION
  Report Type: 
  Country: None (occurrence: None)
  Receive Date: 20051123
  Receipt Date: 20051111
  Transmission Date: 20060501
  Serious: Yes (Hospitalization)
  Sender: FDA-Public Use
  Company Number: DYR-2005-001

PATIENT
  Age: 54 Year
  Sex: Male

DRUGS (1)
  1. TRIAMTERENE [Suspect]
     Indication: ASCITES
     Dosage: 100 MG DAILY
     Dates: start: 20001002

REACTIONS (12)
  - ANAEMIA MEGALOBLASTIC [None]
  - ANISOCYTOSIS [None]
  - BLOOD BILIRUBIN INCREASED [None]
  - BLOOD LACTATE DEHYDROGENASE INCREASED [None]
  - HEPATIC CIRRHOSIS [None]
  - JAUNDICE [None]
  - MARROW HYPERPLASIA [None]
  - PALLOR [None]
  - PALMAR ERYTHEMA [None]
  - PANCYTOPENIA [None]
  - POIKILOCYTOSIS [None]
  - SPIDER NAEVUS [None]
